FAERS Safety Report 13108530 (Version 1)
Quarter: 2017Q1

REPORT INFORMATION
  Report Type: Spontaneous
  Country: NL (occurrence: NL)
  Receive Date: 20170112
  Receipt Date: 20170112
  Transmission Date: 20170428
  Serious: Yes (Other)
  Sender: FDA-Public Use
  Company Number: NL-ASTRAZENECA-2017SE01875

PATIENT
  Sex: Female

DRUGS (2)
  1. ZOLADEX [Suspect]
     Active Substance: GOSERELIN ACETATE
     Indication: ENDOMETRIOSIS
     Dosage: UNKNOWN STRENGTH, 1 DOSE IN FOUR WEEKS
     Route: 058
     Dates: start: 2016, end: 201608
  2. LUCRIN [Suspect]
     Active Substance: LEUPROLIDE ACETATE
     Dosage: DOSING UNKNOWN
     Route: 065

REACTIONS (2)
  - Stillbirth [Unknown]
  - Exposure during pregnancy [Unknown]
